FAERS Safety Report 9431176 (Version 1)
Quarter: 2013Q3

REPORT INFORMATION
  Report Type: Spontaneous
  Country: US (occurrence: US)
  Receive Date: 20130730
  Receipt Date: 20130730
  Transmission Date: 20140515
  Serious: Yes (Hospitalization)
  Sender: FDA-Public Use
  Company Number: US-BAXTER-2013BAX029462

PATIENT
  Age: 73 Year
  Sex: Male

DRUGS (2)
  1. DIANEAL LOW CALCIUM [Suspect]
     Indication: PERITONEAL DIALYSIS
     Route: 033
  2. GABAPENTIN [Suspect]
     Indication: NEUROPATHY PERIPHERAL
     Route: 065

REACTIONS (2)
  - Drug hypersensitivity [Recovering/Resolving]
  - Hallucination [Recovered/Resolved]
